FAERS Safety Report 18898966 (Version 1)
Quarter: 2021Q1

REPORT INFORMATION
  Report Type: Spontaneous
  Country: US (occurrence: US)
  Receive Date: 20210216
  Receipt Date: 20210216
  Transmission Date: 20210420
  Serious: No
  Sender: FDA-Public Use
  Company Number: None

PATIENT
  Age: 50 Year
  Sex: Male
  Weight: 178.2 kg

DRUGS (3)
  1. BAMLANIVIMAB FOR EUA [Suspect]
     Active Substance: BAMLANIVIMAB
     Indication: COVID-19
     Route: 042
     Dates: start: 20210129, end: 20210129
  2. ALBUTEROL. [Concomitant]
     Active Substance: ALBUTEROL
  3. BENZONATATE. [Concomitant]
     Active Substance: BENZONATATE

REACTIONS (8)
  - Oxygen saturation decreased [None]
  - Dyspnoea [None]
  - Dysphonia [None]
  - Chest discomfort [None]
  - Decreased appetite [None]
  - Hypophagia [None]
  - Blood pressure systolic increased [None]
  - COVID-19 pneumonia [None]

NARRATIVE: CASE EVENT DATE: 20210129
